FAERS Safety Report 9613396 (Version 3)
Quarter: 2014Q2

REPORT INFORMATION
  Report Type: Spontaneous
  Country: US (occurrence: US)
  Receive Date: 20131010
  Receipt Date: 20140417
  Transmission Date: 20141212
  Serious: Yes (Hospitalization)
  Sender: FDA-Public Use
  Company Number: US-B.I. PHARMACEUTICALS,INC./RIDGEFIELD-2013-BI-31172BP

PATIENT
  Age: 77 Year
  Sex: Male
  Weight: 86 kg

DRUGS (13)
  1. PRADAXA [Suspect]
     Indication: ATRIAL FIBRILLATION
     Dosage: 300 MG
     Route: 065
     Dates: start: 20101208, end: 20111031
  2. PRADAXA [Suspect]
     Indication: ANTICOAGULANT THERAPY
  3. NEXIUM [Concomitant]
     Dosage: 40 MG
     Route: 065
  4. SYNTHROID [Concomitant]
     Dosage: 75 MCG
     Route: 065
  5. CARDIZEM [Concomitant]
     Dosage: 120 MG
     Route: 065
  6. LASIX [Concomitant]
     Route: 065
  7. KCL [Concomitant]
     Dosage: 20 MEQ
     Route: 065
  8. MULTAQ [Concomitant]
     Dosage: 800 MG
     Route: 065
  9. TRIAMTERENE/HCTZ [Concomitant]
     Route: 065
  10. FLONASE NASAL [Concomitant]
     Route: 065
  11. VENTOLIN [Concomitant]
     Route: 065
  12. REMERON [Concomitant]
     Dosage: 15 MG
     Route: 065
  13. CLARITIN [Concomitant]
     Dosage: 10 MG
     Route: 065

REACTIONS (2)
  - Subdural haematoma [Unknown]
  - Coagulopathy [Unknown]
